FAERS Safety Report 21540575 (Version 1)
Quarter: 2022Q4

REPORT INFORMATION
  Report Type: Spontaneous
  Country: US (occurrence: None)
  Receive Date: 20221101
  Receipt Date: 20221101
  Transmission Date: 20230112
  Serious: No
  Sender: FDA-Public Use
  Company Number: None

PATIENT

DRUGS (2)
  1. TYLENOL [Suspect]
     Active Substance: ACETAMINOPHEN
  2. OXYCODONE [Suspect]
     Active Substance: OXYCODONE

REACTIONS (3)
  - Product preparation error [None]
  - Wrong technique in device usage process [None]
  - Intercepted product administration error [None]
